FAERS Safety Report 16865724 (Version 1)
Quarter: 2019Q3

REPORT INFORMATION
  Report Type: Spontaneous
  Country: US (occurrence: US)
  Receive Date: 20190930
  Receipt Date: 20190930
  Transmission Date: 20191005
  Serious: No
  Sender: FDA-Public Use
  Company Number: US-TORRENT-00008838

PATIENT
  Age: 79 Year
  Sex: Male

DRUGS (3)
  1. ZOLPIDEM [Suspect]
     Active Substance: ZOLPIDEM TARTRATE
     Indication: PRODUCT USED FOR UNKNOWN INDICATION
     Dosage: UNKNOWN
     Dates: start: 20190524
  2. LOSARTAN POTASSIUM 25 MG [Concomitant]
     Active Substance: LOSARTAN POTASSIUM
     Indication: CARDIAC DISORDER
     Dosage: UNKNOWN
  3. CARVEDILOL 3.125 MG [Concomitant]
     Active Substance: CARVEDILOL
     Indication: CARDIAC DISORDER
     Dosage: UNKNOWN

REACTIONS (3)
  - Drug ineffective [Unknown]
  - Irritability [Unknown]
  - Insomnia [Unknown]

NARRATIVE: CASE EVENT DATE: 201905
